FAERS Safety Report 20587518 (Version 2)
Quarter: 2022Q3

REPORT INFORMATION
  Report Type: Spontaneous
  Country: US (occurrence: US)
  Receive Date: 20220314
  Receipt Date: 20220826
  Transmission Date: 20221027
  Serious: Yes (Other)
  Sender: FDA-Public Use
  Company Number: US-SA-SAC20220309001795

PATIENT
  Age: 58 Year
  Sex: Male

DRUGS (2)
  1. ZANTAC [Suspect]
     Active Substance: RANITIDINE HYDROCHLORIDE
     Indication: Dyspepsia
     Dosage: UNK (FREQUENCY: OTHER)
     Route: 065
     Dates: start: 201501, end: 201801
  2. ZANTAC [Suspect]
     Active Substance: RANITIDINE HYDROCHLORIDE
     Indication: Hyperchlorhydria

REACTIONS (1)
  - Gastric cancer [Unknown]

NARRATIVE: CASE EVENT DATE: 20170101
